FAERS Safety Report 20422800 (Version 1)
Quarter: 2022Q1

REPORT INFORMATION
  Report Type: Spontaneous
  Country: CN (occurrence: None)
  Receive Date: 20220203
  Receipt Date: 20220203
  Transmission Date: 20220423
  Serious: Yes (Other)
  Sender: FDA-Public Use
  Company Number: 2022A050001

PATIENT
  Age: 21496 Day
  Sex: Male
  Weight: 70 kg

DRUGS (4)
  1. ROSUVASTATIN CALCIUM [Suspect]
     Active Substance: ROSUVASTATIN CALCIUM
     Indication: Cerebral infarction
     Route: 048
  2. GLUTATHIONE [Concomitant]
     Active Substance: GLUTATHIONE
     Indication: Drug-induced liver injury
     Route: 041
  3. DEXTROSE [Concomitant]
     Active Substance: DEXTROSE
     Indication: Drug-induced liver injury
     Route: 041
  4. ASPIRIN [Concomitant]
     Active Substance: ASPIRIN
     Indication: Cerebral infarction
     Route: 048

REACTIONS (1)
  - Drug-induced liver injury [Not Recovered/Not Resolved]

NARRATIVE: CASE EVENT DATE: 20220107
